FAERS Safety Report 8321514-8 (Version None)
Quarter: 2012Q2

REPORT INFORMATION
  Report Type: 
  Country: None (occurrence: None)
  Receive Date: 20120430
  Receipt Date: 20120430
  Transmission Date: 20120825
  Serious: No
  Sender: FDA-Public Use
  Company Number: None

PATIENT
  Age: 50 Year
  Sex: Female
  Weight: 50.802 kg

DRUGS (4)
  1. ESTRADIOL [Suspect]
     Indication: VULVOVAGINAL DRYNESS
     Dates: start: 20110808, end: 20110831
  2. ESTRADIOL [Suspect]
     Indication: IRRITABILITY
     Dates: start: 20110808, end: 20110831
  3. VIVELLE-DOT [Concomitant]
     Indication: HOT FLUSH
     Dates: start: 20110831, end: 20110907
  4. ESTRADIOL [Concomitant]

REACTIONS (6)
  - LIP SWELLING [None]
  - FLATULENCE [None]
  - FOOD INTOLERANCE [None]
  - DIARRHOEA [None]
  - WEIGHT DECREASED [None]
  - ORAL PAIN [None]
